FAERS Safety Report 9657349 (Version 3)
Quarter: 2013Q4

REPORT INFORMATION
  Report Type: Spontaneous
  Country: FR (occurrence: FR)
  Receive Date: 20131030
  Receipt Date: 20131202
  Transmission Date: 20140711
  Serious: Yes (Hospitalization)
  Sender: FDA-Public Use
  Company Number: FR-GLAXOSMITHKLINE-B0934687A

PATIENT
  Age: 92 Year
  Sex: Female

DRUGS (24)
  1. ZOPHREN [Suspect]
     Indication: VOMITING
     Route: 048
     Dates: start: 20130728, end: 20130820
  2. FLAGYL [Suspect]
     Indication: LUNG DISORDER
     Route: 048
     Dates: start: 20130728, end: 20130820
  3. ACUPAN [Suspect]
     Indication: ABDOMINAL PAIN
     Route: 048
     Dates: start: 20130728, end: 20130820
  4. DROLEPTAN [Suspect]
     Indication: PRODUCT USED FOR UNKNOWN INDICATION
     Route: 048
     Dates: start: 20130728, end: 20130820
  5. VOLTARENE EMULGEL [Suspect]
     Indication: PRODUCT USED FOR UNKNOWN INDICATION
     Route: 061
     Dates: start: 20130825, end: 20130831
  6. ROCEPHINE [Suspect]
     Indication: INFECTION
     Route: 042
     Dates: start: 20130728, end: 20130820
  7. ALLOPURINOL [Concomitant]
     Route: 048
     Dates: end: 20130728
  8. INEXIUM [Concomitant]
     Dosage: 20MG PER DAY
     Route: 048
     Dates: start: 20130728, end: 20130831
  9. EUPANTOL [Concomitant]
     Dosage: 20MG AT NIGHT
     Route: 048
     Dates: start: 20130831
  10. EUPRESSYL [Concomitant]
     Dosage: 30MG THREE TIMES PER DAY
     Route: 048
     Dates: start: 20130728
  11. TARDYFERON [Concomitant]
     Dosage: 80MG TWICE PER DAY
     Route: 048
     Dates: start: 20130728, end: 20130831
  12. FUMAFER [Concomitant]
     Dosage: 66MG THREE TIMES PER DAY
     Route: 048
     Dates: start: 20130831
  13. SPECIAFOLDINE [Concomitant]
     Dosage: 5MG PER DAY
     Route: 048
     Dates: start: 20130825
  14. CALCIPARINE [Concomitant]
     Dosage: .2ML TWICE PER DAY
     Route: 058
     Dates: start: 20130728
  15. PARACETAMOL [Concomitant]
     Route: 048
     Dates: start: 20130728
  16. TENORMINE [Concomitant]
     Dosage: 25MG AT NIGHT
     Route: 065
  17. KARDEGIC [Concomitant]
     Dosage: 75MG PER DAY
     Route: 065
  18. COZAAR [Concomitant]
     Dosage: 25MG IN THE MORNING
     Route: 048
  19. IKOREL [Concomitant]
     Dosage: 10MG TWICE PER DAY
     Route: 065
  20. CORDARONE [Concomitant]
     Dosage: 100MG PER DAY
     Route: 048
  21. LASILIX RETARD [Concomitant]
     Dosage: 60MG IN THE MORNING
     Route: 065
  22. KALEORID [Concomitant]
     Route: 065
  23. DIFFU K [Concomitant]
     Route: 065
  24. UVEDOSE [Concomitant]
     Dosage: 100000IU EVERY TWO WEEKS
     Route: 065

REACTIONS (7)
  - Cholestasis [Recovered/Resolved]
  - Gastrointestinal motility disorder [Recovered/Resolved]
  - Lipase increased [Recovered/Resolved]
  - Anaemia [Recovered/Resolved]
  - Inflammation [Recovered/Resolved]
  - Oedema peripheral [Recovered/Resolved]
  - Calculus bladder [Recovered/Resolved]
